FAERS Safety Report 6348750-4 (Version None)
Quarter: 2009Q3

REPORT INFORMATION
  Report Type: 
  Country: None (occurrence: None)
  Receive Date: 20090911
  Receipt Date: 20090902
  Transmission Date: 20100115
  Serious: No
  Sender: FDA-Public Use
  Company Number: US-B.I. PHARMACEUTICALS,INC./RIDGEFIELD-2009-BP-07313BP

PATIENT
  Sex: Male

DRUGS (7)
  1. SPIRIVA [Suspect]
     Indication: CHRONIC OBSTRUCTIVE PULMONARY DISEASE
     Dosage: 18 MCG
     Route: 055
     Dates: start: 20090105, end: 20090401
  2. METHAMPHETAMINE [Concomitant]
     Indication: GLAUCOMA
  3. LISINOPRIL AND HYDROCHLOROTHIAZIDE [Concomitant]
     Indication: HYPERTENSION
  4. ZALATAN [Concomitant]
     Indication: GLAUCOMA
  5. METHAZOLAMIDE [Concomitant]
  6. XALATAN [Concomitant]
  7. BETIMOL [Concomitant]

REACTIONS (2)
  - PAIN IN EXTREMITY [None]
  - VISION BLURRED [None]
